FAERS Safety Report 15033069 (Version 1)
Quarter: 2018Q3

REPORT INFORMATION
  Report Type: Spontaneous
  Country: US (occurrence: US)
  Receive Date: 20180619
  Receipt Date: 20180619
  Transmission Date: 20181010
  Serious: No
  Sender: FDA-Public Use
  Company Number: US-AVADEL SPECIALTY PHARMACEUTICALS, LLC-2018AVA00040

PATIENT
  Age: 70 Year
  Sex: Female
  Weight: 62.13 kg

DRUGS (14)
  1. MULTIVITAMIN [Concomitant]
     Active Substance: VITAMINS
  2. OXYBUTYNIN. [Concomitant]
     Active Substance: OXYBUTYNIN CHLORIDE
  3. CITRACAL MAXIMUM [Concomitant]
     Active Substance: CALCIUM CITRATE\CHOLECALCIFEROL
  4. NOCTIVA [Suspect]
     Active Substance: DESMOPRESSIN ACETATE
     Indication: NOCTURIA
     Dosage: 0.83 ?G, 1X/DAY
     Route: 045
     Dates: start: 20180419
  5. MOBIC [Concomitant]
     Active Substance: MELOXICAM
  6. CALCIUM [Concomitant]
     Active Substance: CALCIUM
  7. CETIRIZINE [Concomitant]
     Active Substance: CETIRIZINE HYDROCHLORIDE
  8. AMITRIPTYLINE [Concomitant]
     Active Substance: AMITRIPTYLINE
  9. FISH OIL [Concomitant]
     Active Substance: FISH OIL
  10. L?THYROXINE [Concomitant]
     Active Substance: LEVOTHYROXINE
  11. MAGNESIUM [Concomitant]
     Active Substance: MAGNESIUM
  12. VITAMIN D [Concomitant]
     Active Substance: CHOLECALCIFEROL
  13. FLONASE [Concomitant]
     Active Substance: FLUTICASONE PROPIONATE
  14. PROPYLENE GLYCOL [Concomitant]
     Active Substance: PROPYLENE GLYCOL

REACTIONS (3)
  - Wrong technique in product usage process [None]
  - Throat irritation [Not Recovered/Not Resolved]
  - Incorrect route of drug administration [None]

NARRATIVE: CASE EVENT DATE: 20180419
